FAERS Safety Report 9688562 (Version 2)
Quarter: 2013Q4

REPORT INFORMATION
  Report Type: Spontaneous
  Country: US (occurrence: None)
  Receive Date: 20131112
  Receipt Date: 20131120
  Transmission Date: 20140711
  Serious: Yes (Hospitalization)
  Sender: FDA-Public Use
  Company Number: 20130626

PATIENT
  Age: 30 Year
  Sex: Male
  Weight: 129 kg

DRUGS (3)
  1. CALCIUM CHLORIDE [Suspect]
     Indication: HYPOCALCAEMIA
     Dosage: 40.8 MEQ IN 450 ML NS
     Dates: start: 20131016, end: 20131016
  2. DIALYSATE: 23511 (3.5CA/2K)UNK/UNK [Concomitant]
  3. DIALYZER: FRES, OPTIFLUX 200NRE, COMBISET LINES [Concomitant]

REACTIONS (4)
  - Flushing [None]
  - Dizziness [None]
  - Anxiety [None]
  - Panic attack [None]
